FAERS Safety Report 21617178 (Version 1)
Quarter: 2022Q4

REPORT INFORMATION
  Report Type: Spontaneous
  Country: US (occurrence: US)
  Receive Date: 20221118
  Receipt Date: 20221118
  Transmission Date: 20230113
  Serious: Yes (Disabling)
  Sender: FDA-Public Use
  Company Number: US-AMGEN-USASP2022195466

PATIENT
  Sex: Female

DRUGS (2)
  1. PROLIA [Suspect]
     Active Substance: DENOSUMAB
     Indication: Osteopenia
     Dosage: 60 MILLIGRAM/MILLILITRE, Q6MO
     Route: 065
     Dates: end: 2022
  2. LETROZOLE [Concomitant]
     Active Substance: LETROZOLE
     Indication: Neoplasm malignant

REACTIONS (10)
  - Musculoskeletal disorder [Recovering/Resolving]
  - COVID-19 [Recovering/Resolving]
  - Eye infection [Recovering/Resolving]
  - Gastrointestinal infection [Recovering/Resolving]
  - Joint stiffness [Recovering/Resolving]
  - Trigger finger [Recovering/Resolving]
  - Arthralgia [Recovering/Resolving]
  - Bronchitis [Recovering/Resolving]
  - Upper respiratory tract infection [Recovering/Resolving]
  - Off label use [Unknown]
